FAERS Safety Report 4906984-7 (Version None)
Quarter: 2006Q1

REPORT INFORMATION
  Report Type: 
  Country: None (occurrence: None)
  Receive Date: 20060207
  Receipt Date: 20060127
  Transmission Date: 20060701
  Serious: Yes (Death)
  Sender: FDA-Public Use
  Company Number: L05-USA-03935-53

PATIENT
  Age: 49 Year
  Sex: Female

DRUGS (6)
  1. NAMENDA [Suspect]
     Dosage: 245 MG
  2. NAMENDA [Suspect]
     Dosage: 490 MG
  3. BENZTROPINE MESYLATE [Suspect]
     Dosage: 78 MG
  4. GEODON [Suspect]
     Dosage: 3120 MG
  5. PAXIL [Concomitant]
  6. LAMICTAL [Concomitant]

REACTIONS (14)
  - ACIDOSIS [None]
  - BOWEL SOUNDS ABNORMAL [None]
  - BRADYCARDIA [None]
  - CARDIAC ARREST [None]
  - CONVULSION [None]
  - HEPATIC FAILURE [None]
  - HYPERTHERMIA [None]
  - HYPOTENSION [None]
  - LOSS OF CONSCIOUSNESS [None]
  - MOUTH HAEMORRHAGE [None]
  - MULTIPLE DRUG OVERDOSE [None]
  - MYDRIASIS [None]
  - RHABDOMYOLYSIS [None]
  - SUICIDE ATTEMPT [None]
